FAERS Safety Report 6555453-X (Version None)
Quarter: 2010Q1

REPORT INFORMATION
  Report Type: 
  Country: None (occurrence: None)
  Receive Date: 20100126
  Receipt Date: 20100111
  Transmission Date: 20100710
  Serious: Yes (Death, Other)
  Sender: FDA-Public Use
  Company Number: 2010BI001950

PATIENT
  Age: 54 Year

DRUGS (7)
  1. ZEVALIN [Suspect]
     Indication: NON-HODGKIN'S LYMPHOMA
  2. ZEVALIN [Suspect]
     Indication: STEM CELL TRANSPLANT
  3. RITUXIMAB [Concomitant]
  4. CYCLOSPORINE [Concomitant]
  5. FLUDARABINE [Concomitant]
  6. CORTICOSTEROIDS [Concomitant]
  7. PREV MEDS [Concomitant]

REACTIONS (10)
  - ACUTE GRAFT VERSUS HOST DISEASE IN INTESTINE [None]
  - ACUTE GRAFT VERSUS HOST DISEASE IN SKIN [None]
  - ASTHENIA [None]
  - DECREASED APPETITE [None]
  - DEHYDRATION [None]
  - FATIGUE [None]
  - MALNUTRITION [None]
  - MYOPATHY [None]
  - NAUSEA [None]
  - SEPTIC SHOCK [None]
